FAERS Safety Report 6418977-1 (Version None)
Quarter: 2009Q4

REPORT INFORMATION
  Report Type: 
  Country: None (occurrence: None)
  Receive Date: 20091029
  Receipt Date: 20091020
  Transmission Date: 20100525
  Serious: Yes (Life-Threatening, Hospitalization, Disabling)
  Sender: FDA-Public Use
  Company Number: US-JNJFOC-20060404099

PATIENT
  Sex: Male
  Weight: 18.5 kg

DRUGS (24)
  1. CHILDREN'S MOTRIN [Suspect]
  2. CHILDREN'S MOTRIN [Suspect]
  3. CHILDREN'S MOTRIN [Suspect]
  4. CHILDREN'S MOTRIN [Suspect]
     Indication: PYREXIA
  5. CEFZIL [Suspect]
     Route: 048
  6. CEFZIL [Suspect]
     Route: 048
  7. CEFZIL [Suspect]
     Route: 048
  8. CEFZIL [Suspect]
     Indication: PHARYNGITIS STREPTOCOCCAL
     Route: 048
  9. CEFUROXIME [Suspect]
     Route: 042
  10. CEFUROXIME [Suspect]
     Indication: PHARYNGITIS STREPTOCOCCAL
     Route: 042
  11. CEFAZOLIN [Suspect]
     Indication: PHARYNGITIS STREPTOCOCCAL
     Route: 042
  12. CEFOXITIN [Suspect]
     Indication: PHARYNGITIS STREPTOCOCCAL
     Route: 042
  13. POTASSIUM CHLORIDE [Concomitant]
     Indication: MINERAL SUPPLEMENTATION
     Dosage: 30 MEQ 8 HOUR; Q 12 H PRN
  14. HYDROCORTISONE [Concomitant]
     Indication: ECZEMA
     Dosage: AS NECESSARY
     Route: 061
  15. ACETAMINOPHEN [Concomitant]
     Indication: PYREXIA
     Dosage: AS NECESSARY
  16. FLUCONAZOLE [Concomitant]
  17. FLUCONAZOLE [Concomitant]
     Indication: FUNGAEMIA
     Dosage: ORAL AND IV
  18. ATIVAN [Concomitant]
     Indication: ANXIETY
     Route: 050
  19. LANSOPRAZOLE [Concomitant]
     Indication: DRUG USE FOR UNKNOWN INDICATION
     Route: 050
  20. ALDACTONE [Concomitant]
     Indication: DRUG USE FOR UNKNOWN INDICATION
     Route: 050
  21. FUROSEMIDE [Concomitant]
     Indication: DRUG USE FOR UNKNOWN INDICATION
     Dosage: 0.25 MG/KG/HR CONTINUOUS
     Route: 042
  22. FENTANYL-100 [Concomitant]
     Indication: PAIN
     Dosage: 50 MCH/HR CONTINUOUS VIA J-TUBE/BOLUS 25-50 MECG IV Q 1 HOUR PRN
  23. CIPROFLOXACIN [Concomitant]
     Indication: INFECTION
     Dosage: EACH EYE
     Route: 047
  24. LACRI-LUBE [Concomitant]
     Indication: PROPHYLAXIS

REACTIONS (3)
  - CARDIOMYOPATHY [None]
  - PERICARDIAL EFFUSION [None]
  - TOXIC EPIDERMAL NECROLYSIS [None]
